FAERS Safety Report 16059362 (Version 1)
Quarter: 2019Q1

REPORT INFORMATION
  Report Type: Spontaneous
  Country: JP (occurrence: JP)
  Receive Date: 20190311
  Receipt Date: 20190311
  Transmission Date: 20190418
  Serious: Yes (Death, Other)
  Sender: FDA-Public Use
  Company Number: PHHY2019JP053747

PATIENT
  Age: 66 Year
  Sex: Male

DRUGS (3)
  1. ETHAMBUTOL [Suspect]
     Active Substance: ETHAMBUTOL HYDROCHLORIDE
     Indication: MYCOBACTERIUM AVIUM COMPLEX INFECTION
     Dosage: 900 MG, QD
     Route: 065
  2. RIFAMPICIN [Suspect]
     Active Substance: RIFAMPIN
     Indication: MYCOBACTERIUM AVIUM COMPLEX INFECTION
     Dosage: 600 MG, QD
     Route: 065
  3. CLARITHROMYCIN. [Suspect]
     Active Substance: CLARITHROMYCIN
     Indication: MYCOBACTERIUM AVIUM COMPLEX INFECTION
     Dosage: 800 MG, QD
     Route: 065

REACTIONS (10)
  - Pyrexia [Recovered/Resolved]
  - Neuropathy peripheral [Unknown]
  - Abdominal pain upper [Recovered/Resolved]
  - Hepatic function abnormal [Unknown]
  - Gastrointestinal disorder [Unknown]
  - Renal failure [Fatal]
  - Mycobacterial peritonitis [Recovered/Resolved]
  - Product use in unapproved indication [Unknown]
  - Lymphadenopathy [Recovered/Resolved]
  - Ascites [Recovered/Resolved]
